FAERS Safety Report 6980842-9 (Version None)
Quarter: 2010Q3

REPORT INFORMATION
  Report Type: 
  Country: None (occurrence: None)
  Receive Date: 20100914
  Receipt Date: 20100902
  Transmission Date: 20110219
  Serious: Yes (Hospitalization, Other)
  Sender: FDA-Public Use
  Company Number: US-ELI_LILLY_AND_COMPANY-US201008003401

PATIENT
  Sex: Male
  Weight: 66.667 kg

DRUGS (5)
  1. ALIMTA [Suspect]
     Indication: MALIGNANT PERITONEAL NEOPLASM
     Dosage: 500 MG, UNK
  2. ALIMTA [Suspect]
     Dosage: 100 MG, UNK
  3. ALIMTA [Suspect]
     Dosage: 900 MG, UNK
  4. VITAMIN B-12 [Concomitant]
  5. FOLIC ACID [Concomitant]

REACTIONS (2)
  - CONVULSION [None]
  - SEPSIS [None]
